FAERS Safety Report 8061158-9 (Version None)
Quarter: 2012Q1

REPORT INFORMATION
  Report Type: 
  Country: None (occurrence: None)
  Receive Date: 20120120
  Receipt Date: 20110613
  Transmission Date: 20120608
  Serious: No
  Sender: FDA-Public Use
  Company Number: US-ALLERGAN-1108007US

PATIENT
  Age: 80 Year
  Sex: Female

DRUGS (4)
  1. RESTASIS [Suspect]
     Indication: DRY EYE
     Dosage: 1 UNK, UNK
     Route: 047
     Dates: start: 20110501
  2. OTC EYE DROPS [Concomitant]
     Indication: DRY EYE
     Dosage: UNK
  3. ASPIRIN [Concomitant]
     Dosage: 81 MG, QD
     Route: 048
  4. PLAVIX [Concomitant]
     Dosage: 75 MG, QD
     Route: 048

REACTIONS (2)
  - BALANCE DISORDER [None]
  - VISION BLURRED [None]
